FAERS Safety Report 24610342 (Version 4)
Quarter: 2025Q2

REPORT INFORMATION
  Report Type: Report from Study
  Country: US (occurrence: US)
  Receive Date: 20241112
  Receipt Date: 20250409
  Transmission Date: 20250717
  Serious: Yes (Hospitalization)
  Sender: PFIZER
  Company Number: US-PFIZER INC-PV202400145529

PATIENT
  Age: 44 Year
  Sex: Male

DRUGS (2)
  1. LORBRENA [Suspect]
     Active Substance: LORLATINIB
  2. LORBRENA [Suspect]
     Active Substance: LORLATINIB

REACTIONS (12)
  - Pulmonary pain [Unknown]
  - Dizziness [Unknown]
  - Diarrhoea [Unknown]
  - Vomiting [Unknown]
  - Increased appetite [Unknown]
  - Hypoaesthesia oral [Unknown]
  - Liver disorder [Unknown]
  - Arthralgia [Unknown]
  - Dyspnoea [Unknown]
  - Hypoaesthesia [Unknown]
  - Abdominal distension [Unknown]
  - Discomfort [Unknown]
